FAERS Safety Report 4682470-7 (Version None)
Quarter: 2005Q2

REPORT INFORMATION
  Report Type: 
  Country: None (occurrence: None)
  Receive Date: 20050606
  Receipt Date: 20050104
  Transmission Date: 20051028
  Serious: Yes (Hospitalization)
  Sender: FDA-Public Use
  Company Number: CA-ROCHE-391369

PATIENT
  Age: 74 Year
  Sex: Female
  Weight: 52.3 kg

DRUGS (14)
  1. CAPECITABINE [Suspect]
     Route: 048
     Dates: start: 20041207, end: 20041227
  2. ERLOTINIB [Suspect]
     Route: 048
     Dates: start: 20041207, end: 20041219
  3. ERLOTINIB [Suspect]
     Route: 048
     Dates: end: 20050327
  4. ERLOTINIB [Suspect]
     Route: 048
     Dates: start: 20050412
  5. LOPERAMIDE [Concomitant]
     Dates: start: 20041217
  6. VERAPAMIL [Concomitant]
     Dosage: LONG TERM TREATMENT.
  7. LORAZEPAM [Concomitant]
     Dates: start: 20040615
  8. METOCLOPRAMIDE [Concomitant]
     Dates: start: 20041015
  9. LOSEC [Concomitant]
     Dosage: LONG TERM TREATMENT.
  10. LOMOTIL [Concomitant]
     Dates: start: 20050330
  11. QUESTRAN [Concomitant]
     Dates: start: 20050415
  12. DIDROCAL [Concomitant]
  13. PYRIDOXINE HCL [Concomitant]
     Dates: start: 20050117
  14. POTASSIUM CHLORIDE [Concomitant]
     Dates: start: 20041229

REACTIONS (5)
  - CLOSTRIDIAL INFECTION [None]
  - CONFUSIONAL STATE [None]
  - DEHYDRATION [None]
  - DIARRHOEA [None]
  - HYPONATRAEMIA [None]
